FAERS Safety Report 9143845 (Version 1)
Quarter: 2013Q1

REPORT INFORMATION
  Report Type: Spontaneous
  Country: GB (occurrence: GB)
  Receive Date: 20130306
  Receipt Date: 20130306
  Transmission Date: 20140127
  Serious: Yes (Other)
  Sender: FDA-Public Use
  Company Number: GB-TEVA-389216ISR

PATIENT
  Age: 69 Year
  Sex: Female
  Weight: 71.21 kg

DRUGS (1)
  1. TAMOXIFEN [Suspect]
     Indication: MALIGNANT BREAST LUMP REMOVAL
     Route: 048
     Dates: start: 20010103, end: 20060103

REACTIONS (6)
  - Productive cough [Recovered/Resolved]
  - Dyspnoea [Recovered/Resolved]
  - Vaginal discharge [Recovered/Resolved]
  - Dyspnoea exertional [Recovered/Resolved]
  - Anosmia [Recovered/Resolved]
  - Rhinorrhoea [Recovered/Resolved]
